FAERS Safety Report 17443942 (Version 1)
Quarter: 2020Q1

REPORT INFORMATION
  Report Type: Spontaneous
  Country: DK (occurrence: DK)
  Receive Date: 20200221
  Receipt Date: 20200221
  Transmission Date: 20200409
  Serious: Yes (Death, Hospitalization)
  Sender: FDA-Public Use
  Company Number: DK-009507513-2002DNK006583

PATIENT
  Age: 63 Year
  Sex: Male

DRUGS (11)
  1. BRICANYL [Concomitant]
     Active Substance: TERBUTALINE SULFATE
     Indication: BRONCHOSPASM
     Dosage: STRENGTH: 0.5 MG/DOSE, DOSE: 1 INHALATION WHEN NEEDED MAXIMUM 12 TIMES DAILY
     Route: 055
     Dates: start: 20191020
  2. IBUPROFEN. [Concomitant]
     Active Substance: IBUPROFEN
     Indication: PAIN
     Dosage: STRENGTH: 400 MG
     Route: 048
     Dates: start: 20180719
  3. PROMETHAZINE [Concomitant]
     Active Substance: PROMETHAZINE HYDROCHLORIDE
     Indication: INSOMNIA
     Dosage: STRENGTH: 25 MG
     Route: 048
     Dates: start: 20191203
  4. KEYTRUDA [Suspect]
     Active Substance: PEMBROLIZUMAB
     Indication: LUNG NEOPLASM MALIGNANT
     Dosage: 175 MILLIGRAM
     Route: 042
     Dates: start: 20191111, end: 20191204
  5. AMLODIPINE [Concomitant]
     Active Substance: AMLODIPINE BESYLATE
     Indication: HYPERTENSION
     Dosage: STRENGTH: 5 MG
     Route: 048
     Dates: start: 20191020
  6. MAGNESIUM HYDROXIDE. [Concomitant]
     Active Substance: MAGNESIUM HYDROXIDE
     Indication: CONSTIPATION
     Dosage: STRENGTH: 500 MG
     Route: 048
     Dates: start: 20191202
  7. OLODATEROL HYDROCHLORIDE (+) TIOTROPIUM BROMIDE [Concomitant]
     Active Substance: OLODATEROL HYDROCHLORIDE\TIOTROPIUM BROMIDE MONOHYDRATE
     Indication: CHRONIC OBSTRUCTIVE PULMONARY DISEASE
     Dosage: STRENGTH:: 2.5+2.5 ?G
     Route: 055
     Dates: start: 20191020
  8. ZOPICLONE [Concomitant]
     Active Substance: ZOPICLONE
     Indication: INSOMNIA
     Dosage: STRENGTH: 7.5 MG
     Route: 048
     Dates: start: 20191104
  9. PANTOPRAZOLE [Concomitant]
     Active Substance: PANTOPRAZOLE
     Indication: PROPHYLAXIS AGAINST GASTROINTESTINAL ULCER
     Dosage: STRENGTH: 40 MG
     Route: 048
     Dates: start: 20170204
  10. METOPROLOL. [Concomitant]
     Active Substance: METOPROLOL
     Indication: ARRHYTHMIA
     Dosage: STRENGTH: 100 MILLIGRAM (MG)
     Route: 048
     Dates: start: 20150825
  11. FLUCONAZOLE. [Concomitant]
     Active Substance: FLUCONAZOLE
     Indication: ORAL VIRAL INFECTION
     Dosage: STRENGTH: 50 MG
     Route: 048
     Dates: start: 20191031

REACTIONS (7)
  - Myelitis [Fatal]
  - Malaise [Unknown]
  - Ileus [Fatal]
  - Muscular weakness [Unknown]
  - Urinary retention [Unknown]
  - Dysphonia [Unknown]
  - Dysphagia [Unknown]

NARRATIVE: CASE EVENT DATE: 201912
